FAERS Safety Report 7726007-4 (Version None)
Quarter: 2011Q3

REPORT INFORMATION
  Report Type: 
  Country: None (occurrence: None)
  Receive Date: 20110902
  Receipt Date: 20110824
  Transmission Date: 20111222
  Serious: Yes (Other)
  Sender: FDA-Public Use
  Company Number: US-ROCHE-798292

PATIENT

DRUGS (2)
  1. PEMETREXED [Suspect]
     Indication: NON-SMALL CELL LUNG CANCER
     Route: 065
  2. BEVACIZUMAB [Suspect]
     Indication: NON-SMALL CELL LUNG CANCER
     Route: 065

REACTIONS (6)
  - RESPIRATORY DISTRESS [None]
  - PNEUMONIA [None]
  - FATIGUE [None]
  - EMBOLISM [None]
  - RENAL FAILURE ACUTE [None]
  - NEUTROPENIA [None]
